FAERS Safety Report 5396059-8 (Version None)
Quarter: 2007Q3

REPORT INFORMATION
  Report Type: 
  Country: None (occurrence: None)
  Receive Date: 20070718
  Receipt Date: 20061016
  Transmission Date: 20080115
  Serious: Yes (Other)
  Sender: FDA-Public Use
  Company Number: 2006128912

PATIENT
  Age: 74 Year
  Sex: Female
  Weight: 53.5244 kg

DRUGS (4)
  1. CELECOXIB [Suspect]
  2. INFLIXIMAB (INFLIXIMAB) [Suspect]
     Indication: RHEUMATOID ARTHRITIS
     Dosage: INTRAVENOUS
     Route: 042
     Dates: end: 20051130
  3. LEFLUNOMIDE [Concomitant]
  4. PREDNISONE TAB [Concomitant]

REACTIONS (1)
  - MYOCARDIAL INFARCTION [None]
